FAERS Safety Report 9013771 (Version 1)
Quarter: 2013Q1

REPORT INFORMATION
  Report Type: Spontaneous
  Country: US (occurrence: None)
  Receive Date: 20130108
  Receipt Date: 20130108
  Transmission Date: 20140127
  Serious: Yes (Other)
  Sender: FDA-Public Use
  Company Number: None

PATIENT
  Sex: Female
  Weight: 90 kg

DRUGS (2)
  1. AFINITOR [Suspect]
     Dosage: 10 MG QD PO
     Route: 048
     Dates: start: 20121001, end: 20121224
  2. AFINITOR [Suspect]
     Dosage: 10 MG QD PO
     Route: 048
     Dates: start: 20121001, end: 20121224

REACTIONS (1)
  - Drug ineffective [None]
